FAERS Safety Report 10234792 (Version 4)
Quarter: 2017Q3

REPORT INFORMATION
  Report Type: Spontaneous
  Country: BR (occurrence: BR)
  Receive Date: 20140613
  Receipt Date: 20170814
  Transmission Date: 20171127
  Serious: Yes (Other)
  Sender: FDA-Public Use
  Company Number: BR-AMGEN INC.-BRACT2013004088

PATIENT
  Age: 41 Year
  Sex: Female
  Weight: 52 kg

DRUGS (9)
  1. METHOTREXATE SODIUM. [Concomitant]
     Active Substance: METHOTREXATE SODIUM
     Dosage: 0.8 ML (50MG), ONCE WEEKLY
     Route: 058
     Dates: start: 2010, end: 2012
  2. ORTHO EVRA [Concomitant]
     Active Substance: ETHINYL ESTRADIOL\NORELGESTROMIN
     Indication: CONTRACEPTION
     Dosage: UNK
  3. ENBREL [Suspect]
     Active Substance: ETANERCEPT
     Indication: RHEUMATOID ARTHRITIS
     Dosage: 25 MG, 2X/WEEK
     Route: 058
     Dates: start: 201004, end: 201109
  4. ENBREL [Suspect]
     Active Substance: ETANERCEPT
     Dosage: 25 MG, 2X/DAY
     Route: 058
     Dates: start: 20111002
  5. ENBREL [Suspect]
     Active Substance: ETANERCEPT
     Dosage: 25 MG, ONCE EVERY 10 DAYS
     Route: 058
     Dates: start: 201211
  6. ENBREL [Suspect]
     Active Substance: ETANERCEPT
     Dosage: 50 MG, ONCE A WEEK
     Route: 058
     Dates: start: 201306
  7. ENBREL [Suspect]
     Active Substance: ETANERCEPT
     Dosage: 50 MG, EVERY TEN DAYS
     Route: 065
  8. ARAVA [Concomitant]
     Active Substance: LEFLUNOMIDE
     Dosage: UNK
  9. ENBREL [Suspect]
     Active Substance: ETANERCEPT
     Dosage: 50 MG, ONCE WEEKLY
     Route: 058

REACTIONS (26)
  - Pain [Not Recovered/Not Resolved]
  - Intentional product misuse [Unknown]
  - Tendon rupture [Not Recovered/Not Resolved]
  - Dizziness [Recovered/Resolved]
  - Neck pain [Unknown]
  - Cyst [Unknown]
  - Injection site pruritus [Unknown]
  - Wheezing [Unknown]
  - Nausea [Unknown]
  - Back pain [Unknown]
  - Product quality issue [Unknown]
  - Product use issue [Unknown]
  - Tuberculin test positive [Unknown]
  - Pain in extremity [Unknown]
  - Musculoskeletal stiffness [Unknown]
  - Injection site swelling [Unknown]
  - Tuberculosis [Unknown]
  - Weight decreased [Unknown]
  - Rheumatoid arthritis [Recovering/Resolving]
  - Arthralgia [Unknown]
  - Thyroid disorder [Not Recovered/Not Resolved]
  - Hyperaesthesia [Unknown]
  - Myocardial infarction [Unknown]
  - Product use issue [Unknown]
  - Injection site haematoma [Unknown]
  - Injection site pain [Unknown]

NARRATIVE: CASE EVENT DATE: 2013
